FAERS Safety Report 9201992 (Version 1)
Quarter: 2013Q2

REPORT INFORMATION
  Report Type: Spontaneous
  Country: US (occurrence: US)
  Receive Date: 20130401
  Receipt Date: 20130401
  Transmission Date: 20140414
  Serious: Yes (Other)
  Sender: FDA-Public Use
  Company Number: US-JNJFOC-20130316870

PATIENT
  Sex: Female
  Weight: 63.5 kg

DRUGS (6)
  1. COSMETICS [Suspect]
     Indication: SKIN FISSURES
     Dosage: ABOUT A DIME SIZE, OFF AND ON
     Route: 061
  2. COSMETICS [Suspect]
     Indication: DRY SKIN
     Dosage: ABOUT A DIME SIZE, OFF AND ON
     Route: 061
  3. PEPCID [Concomitant]
     Indication: GASTROOESOPHAGEAL REFLUX DISEASE
     Dosage: 3 MONTHS
     Route: 065
  4. AMLODIPINE [Concomitant]
     Indication: HYPERTENSION
     Dosage: 6-7 YRS
     Route: 065
  5. ECHINACEA [Concomitant]
     Indication: IMMUNE SYSTEM DISORDER
     Dosage: 1 MONTH
     Route: 065
  6. FLAXSEED [Concomitant]
     Indication: BLOOD CHOLESTEROL
     Dosage: DAILY, 18 MONTHS
     Route: 065

REACTIONS (2)
  - Angioedema [Recovered/Resolved]
  - Swollen tongue [Recovered/Resolved]
